FAERS Safety Report 8828198 (Version 1)
Quarter: 2012Q4

REPORT INFORMATION
  Report Type: 
  Country: US (occurrence: US)
  Receive Date: 20121005
  Receipt Date: 20121005
  Transmission Date: 20130627
  Serious: No
  Sender: FDA-Public Use
  Company Number: US-PFIZER INC-2012245794

PATIENT
  Age: 62 Year
  Sex: Female
  Weight: 29 kg

DRUGS (1)
  1. ADVIL ALLERGY SINUS [Suspect]
     Indication: ALLERGIC SINUSITIS
     Dosage: UNK, as needed
     Route: 048
     Dates: start: 2011

REACTIONS (3)
  - Poor quality drug administered [Unknown]
  - Headache [Not Recovered/Not Resolved]
  - Product physical issue [Not Recovered/Not Resolved]
